FAERS Safety Report 16190052 (Version 1)
Quarter: 2019Q2

REPORT INFORMATION
  Report Type: Spontaneous
  Country: US (occurrence: US)
  Receive Date: 20190308
  Receipt Date: 20190308
  Transmission Date: 20190711
  Serious: No
  Sender: FDA-Public Use
  Company Number: None

PATIENT
  Age: 67 Year
  Sex: Female

DRUGS (1)
  1. DALFAMPRIDINE ER 10MG MYLAN [Suspect]
     Active Substance: DALFAMPRIDINE
     Indication: MULTIPLE SCLEROSIS
     Route: 048
     Dates: start: 20181004

REACTIONS (5)
  - Product substitution issue [None]
  - Fall [None]
  - Balance disorder [None]
  - Paraesthesia [None]
  - Condition aggravated [None]

NARRATIVE: CASE EVENT DATE: 201810
